FAERS Safety Report 18363205 (Version 1)
Quarter: 2020Q4

REPORT INFORMATION
  Report Type: Spontaneous
  Country: US (occurrence: US)
  Receive Date: 20201008
  Receipt Date: 20201008
  Transmission Date: 20210114
  Serious: No
  Sender: FDA-Public Use
  Company Number: US-009507513-2010USA002087

PATIENT
  Age: 72 Year
  Sex: Female

DRUGS (1)
  1. REBETOL [Suspect]
     Active Substance: RIBAVIRIN
     Indication: PNEUMONITIS
     Dosage: 400 MILLIGRAM, Q8H, FOR 10 DAYS
     Route: 048

REACTIONS (1)
  - Product use in unapproved indication [Unknown]
